FAERS Safety Report 11390705 (Version 1)
Quarter: 2015Q3

REPORT INFORMATION
  Report Type: Spontaneous
  Country: US (occurrence: US)
  Receive Date: 20150818
  Receipt Date: 20150818
  Transmission Date: 20151125
  Serious: No
  Sender: FDA-Public Use
  Company Number: US-ROCHE-1380374

PATIENT
  Sex: Female

DRUGS (5)
  1. SOVALDI [Concomitant]
     Active Substance: SOFOSBUVIR
     Indication: CHRONIC HEPATITIS C
     Route: 065
     Dates: start: 20140404
  2. PEGASYS [Suspect]
     Active Substance: PEGINTERFERON ALFA-2A
     Indication: CHRONIC HEPATITIS C
     Route: 058
     Dates: start: 20140404
  3. RIBAVIRIN. [Concomitant]
     Active Substance: RIBAVIRIN
     Route: 065
     Dates: start: 2000
  4. RIBAVIRIN. [Concomitant]
     Active Substance: RIBAVIRIN
     Indication: CHRONIC HEPATITIS C
     Dosage: IN DIVIDED DOSES
     Route: 048
     Dates: start: 20140404
  5. PEGASYS [Suspect]
     Active Substance: PEGINTERFERON ALFA-2A
     Route: 065
     Dates: start: 2000

REACTIONS (13)
  - Muscular weakness [Unknown]
  - Dizziness [Unknown]
  - Increased appetite [Unknown]
  - Muscle atrophy [Unknown]
  - Paraesthesia [Unknown]
  - Hypoaesthesia [Unknown]
  - Nausea [Unknown]
  - Decreased appetite [Unknown]
  - Formication [Unknown]
  - Musculoskeletal pain [Unknown]
  - Hypotension [Unknown]
  - Heart rate increased [Unknown]
  - Fatigue [Unknown]
